FAERS Safety Report 21087149 (Version 1)
Quarter: 2022Q3

REPORT INFORMATION
  Report Type: Spontaneous
  Country: US (occurrence: None)
  Receive Date: 20220714
  Receipt Date: 20220714
  Transmission Date: 20221027
  Serious: Yes (Hospitalization)
  Sender: FDA-Public Use
  Company Number: None

PATIENT
  Age: 75 Year
  Sex: Male
  Weight: 82 kg

DRUGS (2)
  1. POLYETHYLENE GLYCOL-3350 AND ELECTROLYTES [Suspect]
     Active Substance: POLYETHYLENE GLYCOL 3350\POTASSIUM CHLORIDE\SODIUM BICARBONATE\SODIUM CHLORIDE\SODIUM SULFATE
     Indication: Surgery
     Dosage: 4000 ML ONCE PO?
     Route: 048
     Dates: start: 20220411, end: 20220412
  2. BISACODYL [Suspect]
     Active Substance: BISACODYL
     Indication: Surgery
     Dosage: 15 MG ONCE PO
     Route: 048
     Dates: start: 20220411, end: 20220412

REACTIONS (3)
  - Seizure like phenomena [None]
  - Dehydration [None]
  - Syncope [None]
